FAERS Safety Report 5521123-X (Version None)
Quarter: 2007Q4

REPORT INFORMATION
  Report Type: 
  Country: None (occurrence: None)
  Receive Date: 20071119
  Receipt Date: 20070815
  Transmission Date: 20080405
  Serious: Yes (Other)
  Sender: FDA-Public Use
  Company Number: US-ASTRAZENECA-2007UW05720

PATIENT
  Age: 644 Month
  Sex: Female

DRUGS (11)
  1. SEROQUEL [Suspect]
     Indication: BIPOLAR DISORDER
     Route: 048
     Dates: start: 20000101, end: 20051101
  2. SEROQUEL [Suspect]
     Indication: DEPRESSION
     Route: 048
     Dates: start: 20000101, end: 20051101
  3. SEROQUEL [Suspect]
     Route: 048
     Dates: start: 20060301, end: 20060331
  4. SEROQUEL [Suspect]
     Route: 048
     Dates: start: 20060301, end: 20060331
  5. SEROQUEL [Suspect]
     Route: 048
     Dates: start: 20051201, end: 20060801
  6. SEROQUEL [Suspect]
     Route: 048
     Dates: start: 20051201, end: 20060801
  7. SEROQUEL [Suspect]
     Route: 048
     Dates: start: 20070701, end: 20070731
  8. SEROQUEL [Suspect]
     Route: 048
     Dates: start: 20070701, end: 20070731
  9. SEROQUEL [Suspect]
     Route: 048
     Dates: start: 20070702
  10. SEROQUEL [Suspect]
     Route: 048
     Dates: start: 20070702
  11. RISPERDAL [Concomitant]
     Route: 048
     Dates: start: 19900101, end: 20070812

REACTIONS (3)
  - INJURY [None]
  - NEUROPATHY [None]
  - TYPE 2 DIABETES MELLITUS [None]
